FAERS Safety Report 22618818 (Version 2)
Quarter: 2023Q2

REPORT INFORMATION
  Report Type: Spontaneous
  Country: ES (occurrence: ES)
  Receive Date: 20230620
  Receipt Date: 20230630
  Transmission Date: 20230722
  Serious: Yes (Death, Hospitalization, Other)
  Sender: FDA-Public Use
  Company Number: ES-TEO-20231587

PATIENT
  Age: 77 Year
  Sex: Female

DRUGS (4)
  1. LOSARTAN [Suspect]
     Active Substance: LOSARTAN
     Indication: Product used for unknown indication
     Dosage: UNK
     Route: 065
  2. AZATHIOPRINE [Suspect]
     Active Substance: AZATHIOPRINE
     Indication: Product used for unknown indication
     Dosage: UNK
     Route: 065
  3. PREDNISONE [Suspect]
     Active Substance: PREDNISONE
     Indication: Product used for unknown indication
     Dosage: UNK
     Route: 065
  4. URSODIOL [Suspect]
     Active Substance: URSODIOL
     Indication: Product used for unknown indication
     Dosage: UNK
     Route: 065

REACTIONS (13)
  - Aspergillus infection [Fatal]
  - Coma [Fatal]
  - Encephalitis [Fatal]
  - Multiple organ dysfunction syndrome [Fatal]
  - Pneumonia [Fatal]
  - Pneumonia necrotising [Fatal]
  - Respiratory failure [Fatal]
  - Seizure [Fatal]
  - Quadriparesis [Fatal]
  - Dysarthria [Fatal]
  - Generalised oedema [Fatal]
  - Language disorder [Fatal]
  - Muscular weakness [Fatal]
